FAERS Safety Report 11245213 (Version 1)
Quarter: 2015Q3

REPORT INFORMATION
  Report Type: Spontaneous
  Country: US (occurrence: US)
  Receive Date: 20150707
  Receipt Date: 20150707
  Transmission Date: 20151125
  Serious: No
  Sender: FDA-Public Use
  Company Number: US-009507513-1507USA002974

PATIENT
  Sex: Female

DRUGS (1)
  1. LOSARTAN POTASSIUM TABLETS [Suspect]
     Active Substance: LOSARTAN POTASSIUM
     Route: 048

REACTIONS (4)
  - Lactose intolerance [Unknown]
  - Reaction to drug excipients [Unknown]
  - Diarrhoea [Unknown]
  - Muscle spasms [Unknown]
